FAERS Safety Report 15153315 (Version 1)
Quarter: 2018Q3

REPORT INFORMATION
  Report Type: Spontaneous
  Country: RU (occurrence: RU)
  Receive Date: 20180717
  Receipt Date: 20180717
  Transmission Date: 20181010
  Serious: Yes (Other)
  Sender: FDA-Public Use
  Company Number: RU-ROCHE-2153609

PATIENT
  Age: 67 Year
  Sex: Female

DRUGS (4)
  1. PERJETA [Suspect]
     Active Substance: PERTUZUMAB
     Indication: BREAST CANCER
     Route: 042
  2. DOCETAXEL. [Concomitant]
     Active Substance: DOCETAXEL
     Indication: BREAST CANCER
  3. TRASTUZUMAB. [Concomitant]
     Active Substance: TRASTUZUMAB
     Indication: BREAST CANCER
     Route: 065
  4. CARBOPLATIN. [Concomitant]
     Active Substance: CARBOPLATIN
     Indication: BREAST CANCER

REACTIONS (21)
  - Diarrhoea [Unknown]
  - Abdominal pain upper [Unknown]
  - Vomiting [Unknown]
  - Ulcer [Unknown]
  - Asthenia [Unknown]
  - Ageusia [Unknown]
  - Dehydration [Unknown]
  - Nausea [Unknown]
  - Mouth ulceration [Unknown]
  - Pruritus [Unknown]
  - Abdominal pain lower [Unknown]
  - Weight decreased [Unknown]
  - Aphonia [Unknown]
  - Syncope [Unknown]
  - Arthralgia [Unknown]
  - Insomnia [Unknown]
  - Nasal ulcer [Unknown]
  - Skin ulcer [Unknown]
  - Body temperature increased [Unknown]
  - Myalgia [Unknown]
  - Decreased appetite [Unknown]
